FAERS Safety Report 7742019-9 (Version None)
Quarter: 2011Q3

REPORT INFORMATION
  Report Type: 
  Country: None (occurrence: None)
  Receive Date: 20110912
  Receipt Date: 20110908
  Transmission Date: 20111222
  Serious: Yes (Death, Hospitalization)
  Sender: FDA-Public Use
  Company Number: AU-B.I. PHARMACEUTICALS,INC./RIDGEFIELD-2011-AU-01068AU

PATIENT
  Sex: Male

DRUGS (7)
  1. CARVEDILOL [Concomitant]
     Dosage: 12.5 MG
  2. NEXIUM [Concomitant]
     Dosage: 40 MG
  3. PRADAXA [Suspect]
     Indication: ATRIAL FIBRILLATION
     Dosage: 220 MG
     Dates: start: 20110706, end: 20110809
  4. MS CONTIN [Concomitant]
     Dosage: 200 MG
  5. WARFARIN SODIUM [Suspect]
     Indication: ATRIAL FIBRILLATION
  6. IMOVANE [Concomitant]
     Dosage: 15 MG
  7. LANOXIN [Concomitant]
     Dosage: 62.5 MG

REACTIONS (9)
  - ANAEMIA [None]
  - PNEUMONIA [None]
  - COLONIC POLYP [None]
  - MELAENA [None]
  - AMNESIA [None]
  - DEATH [None]
  - DECREASED APPETITE [None]
  - WEIGHT DECREASED [None]
  - FALL [None]
